FAERS Safety Report 10060517 (Version 3)
Quarter: 2014Q2

REPORT INFORMATION
  Report Type: Report from Study
  Country: FR (occurrence: FR)
  Receive Date: 20140404
  Receipt Date: 20140523
  Transmission Date: 20141212
  Serious: Yes (Disabling)
  Sender: FDA-Public Use
  Company Number: FR-JNJFOC-20130906971

PATIENT
  Age: 30 Year
  Sex: Male
  Weight: 67 kg

DRUGS (23)
  1. TMC207 [Suspect]
     Indication: TUBERCULOSIS
     Route: 048
     Dates: start: 20130622, end: 20131206
  2. ZYVOXID [Suspect]
     Indication: TUBERCULOSIS
     Route: 048
     Dates: start: 20130608
  3. ZYVOXID [Suspect]
     Indication: TUBERCULOSIS
     Route: 048
     Dates: start: 20130622, end: 20131112
  4. AUGMENTIN [Suspect]
     Indication: TUBERCULOSIS
     Dates: start: 20130622, end: 20131203
  5. CYCLOSERINE [Suspect]
     Indication: TUBERCULOSIS
     Route: 048
     Dates: start: 20130622
  6. IZILOX [Concomitant]
     Indication: TUBERCULOSIS
     Route: 048
     Dates: start: 20130608
  7. IZILOX [Concomitant]
     Indication: TUBERCULOSIS
     Route: 048
     Dates: start: 20130622
  8. ACUPAN [Concomitant]
  9. LOVENOX [Concomitant]
  10. PEVARYL [Concomitant]
  11. INEXIUM [Concomitant]
     Route: 048
  12. PYRAZINAMIDE [Concomitant]
     Indication: TUBERCULOSIS
  13. PASER [Concomitant]
     Indication: TUBERCULOSIS
     Route: 048
     Dates: start: 20130608
  14. PASER [Concomitant]
     Indication: TUBERCULOSIS
     Route: 048
     Dates: start: 20130622, end: 20130630
  15. PRIMPERAN [Concomitant]
  16. TOPALGIC LP [Concomitant]
  17. FUNGIZONE [Concomitant]
  18. MOTILIUM [Concomitant]
     Dosage: 3 PER DAY PLUS 1 IF NEEDED
     Route: 048
  19. ALPRAZOLAM [Concomitant]
     Route: 048
  20. VALIUM [Concomitant]
     Route: 048
  21. BUPRENORPHINE [Concomitant]
     Route: 060
  22. VITAMIN B1-B6 [Concomitant]
  23. METHADONE [Concomitant]
     Indication: DRUG DEPENDENCE
     Route: 048

REACTIONS (8)
  - Polyneuropathy [Not Recovered/Not Resolved]
  - Anaemia [Recovered/Resolved]
  - Thrombocytopenia [Unknown]
  - Fungal infection [Unknown]
  - Oral fungal infection [Unknown]
  - Nausea [Unknown]
  - Vomiting [Unknown]
  - Tuberculosis [Unknown]
